FAERS Safety Report 5247733-5 (Version None)
Quarter: 2007Q1

REPORT INFORMATION
  Report Type: 
  Country: None (occurrence: None)
  Receive Date: 20070222
  Receipt Date: 20070206
  Transmission Date: 20070707
  Serious: Yes (Hospitalization)
  Sender: FDA-Public Use
  Company Number: 2006-02963

PATIENT
  Age: 52 Year
  Sex: 0

DRUGS (8)
  1. VELCADE [Suspect]
     Indication: MULTIPLE MYELOMA
     Dosage: INTRAVENOUS
     Route: 042
  2. DOXORUBICIN HCL [Suspect]
     Indication: MULTIPLE MYELOMA
  3. DEXAMETHASONE [Suspect]
     Indication: MULTIPLE MYELOMA
  4. ACETAMINOPHEN [Concomitant]
  5. TILIDINE (TILIDINE) [Concomitant]
  6. IBUPROFEN [Concomitant]
  7. ALLOPURINOL [Concomitant]
  8. NEXIUM [Concomitant]

REACTIONS (13)
  - BACK PAIN [None]
  - BRAIN STEM SYNDROME [None]
  - CEREBRAL INFARCTION [None]
  - COMA [None]
  - DELIRIUM [None]
  - DISTURBANCE IN ATTENTION [None]
  - ENCEPHALITIS VIRAL [None]
  - HEADACHE [None]
  - HYPERHIDROSIS [None]
  - NERVOUS SYSTEM DISORDER [None]
  - PLASMACYTOMA [None]
  - PLEOCYTOSIS [None]
  - RESTLESSNESS [None]
